FAERS Safety Report 10048195 (Version 4)
Quarter: 2015Q3

REPORT INFORMATION
  Report Type: Spontaneous
  Country: US (occurrence: US)
  Receive Date: 20140331
  Receipt Date: 20150706
  Transmission Date: 20151125
  Serious: Yes (Hospitalization, Other)
  Sender: FDA-Public Use
  Company Number: US-PFIZER INC-2014087873

PATIENT
  Age: 79 Year
  Sex: Female

DRUGS (4)
  1. TRAMADOL. [Concomitant]
     Active Substance: TRAMADOL
     Dosage: UNK
  2. LYRICA [Suspect]
     Active Substance: PREGABALIN
     Indication: PAIN IN EXTREMITY
     Dosage: 10 MG, UNK
     Dates: start: 2010
  3. CELEBREX [Concomitant]
     Active Substance: CELECOXIB
  4. LYRICA [Suspect]
     Active Substance: PREGABALIN
     Indication: NEURALGIA
     Dosage: 2 DF, DAILY

REACTIONS (12)
  - Procedural complication [Not Recovered/Not Resolved]
  - Tendon disorder [Unknown]
  - Malaise [Unknown]
  - Hyperhidrosis [Unknown]
  - Arthropathy [Recovered/Resolved]
  - Drug withdrawal syndrome [Not Recovered/Not Resolved]
  - Chills [Unknown]
  - Vomiting [Unknown]
  - Dizziness [Unknown]
  - Post procedural infection [Recovered/Resolved]
  - Feeling abnormal [Unknown]
  - Nervousness [Unknown]
